FAERS Safety Report 7631456-9 (Version None)
Quarter: 2011Q3

REPORT INFORMATION
  Report Type: 
  Country: None (occurrence: None)
  Receive Date: 20110725
  Receipt Date: 20110712
  Transmission Date: 20111222
  Serious: Yes (Hospitalization)
  Sender: FDA-Public Use
  Company Number: FR-ELI_LILLY_AND_COMPANY-FR201107002983

PATIENT
  Sex: Female

DRUGS (3)
  1. ZYPREXA [Suspect]
     Indication: MENTAL DISORDER
     Dosage: 5 MG, QD
     Route: 048
     Dates: start: 20100128, end: 20100315
  2. ZOLPIDEM [Concomitant]
     Indication: SLEEP DISORDER
     Dosage: 10 MG, QD
     Route: 048
     Dates: start: 20080101
  3. CONCERTA [Concomitant]
     Indication: MENTAL DISORDER
     Dosage: 5 MG, QD
     Route: 048
     Dates: start: 20100126, end: 20100215

REACTIONS (7)
  - TACHYCARDIA [None]
  - NAUSEA [None]
  - BALANCE DISORDER [None]
  - WEIGHT INCREASED [None]
  - GASTROINTESTINAL DISORDER [None]
  - SOMNOLENCE [None]
  - OFF LABEL USE [None]
